FAERS Safety Report 14656005 (Version 1)
Quarter: 2018Q1

REPORT INFORMATION
  Report Type: Spontaneous
  Country: JP (occurrence: JP)
  Receive Date: 20180319
  Receipt Date: 20180319
  Transmission Date: 20180509
  Serious: Yes (Other)
  Sender: FDA-Public Use
  Company Number: JP-MYLANLABS-2018M1016784

PATIENT
  Age: 29 Year
  Sex: Female

DRUGS (4)
  1. MAGNESIUM CHLORIDE. [Suspect]
     Active Substance: MAGNESIUM CHLORIDE
     Dosage: ON DAY 12
     Route: 050
  2. MAGNESIUM CHLORIDE. [Suspect]
     Active Substance: MAGNESIUM CHLORIDE
     Indication: PRE-ECLAMPSIA
     Dosage: ON DAY 1
     Route: 050
  3. MAGNESIUM CHLORIDE. [Suspect]
     Active Substance: MAGNESIUM CHLORIDE
     Dosage: ON DAYS 2-5
     Route: 050
  4. MAGNESIUM CHLORIDE. [Suspect]
     Active Substance: MAGNESIUM CHLORIDE
     Dosage: ON DAYS 6-12
     Route: 050

REACTIONS (4)
  - Hypotonia [Unknown]
  - Hyperkalaemia [Recovered/Resolved]
  - Hypermagnesaemia [Recovered/Resolved]
  - Maternal exposure during pregnancy [Recovered/Resolved]
